FAERS Safety Report 16393442 (Version 2)
Quarter: 2019Q4

REPORT INFORMATION
  Report Type: Report from Study
  Country: US (occurrence: US)
  Receive Date: 20190605
  Receipt Date: 20191218
  Transmission Date: 20200122
  Serious: Yes (Other)
  Sender: FDA-Public Use
  Company Number: US-UCBSA-2019013530

PATIENT
  Age: 80 Year
  Sex: Male

DRUGS (1)
  1. CERTOLIZUMAB PEGOL [Suspect]
     Active Substance: CERTOLIZUMAB PEGOL
     Indication: ANKYLOSING SPONDYLITIS
     Dosage: 400 MG, EV 4 WEEKS
     Dates: start: 20190207

REACTIONS (6)
  - Product dose omission [Not Recovered/Not Resolved]
  - Nightmare [Not Recovered/Not Resolved]
  - Arthralgia [Not Recovered/Not Resolved]
  - Head injury [Not Recovered/Not Resolved]
  - Sciatica [Not Recovered/Not Resolved]
  - Myocardial infarction [Not Recovered/Not Resolved]

NARRATIVE: CASE EVENT DATE: 20190215
